FAERS Safety Report 14986043 (Version 1)
Quarter: 2018Q2

REPORT INFORMATION
  Report Type: Spontaneous
  Country: FR (occurrence: FR)
  Receive Date: 20180607
  Receipt Date: 20180607
  Transmission Date: 20180711
  Serious: Yes (Other)
  Sender: FDA-Public Use
  Company Number: FR-BAUSCH-BL-2018-016032

PATIENT
  Age: 50 Year
  Sex: Female

DRUGS (8)
  1. OFLOXACINE NOS [Suspect]
     Active Substance: OFLOXACIN
     Indication: SEASONAL ALLERGY
     Route: 065
  2. ORELOX [Concomitant]
     Active Substance: CEFPODOXIME
     Indication: EAR INFECTION
     Route: 065
     Dates: start: 20121103
  3. ORELOX [Concomitant]
     Active Substance: CEFPODOXIME
     Indication: RASH GENERALISED
     Dates: start: 20120201, end: 20120210
  4. OFLOXACINE NOS [Suspect]
     Active Substance: OFLOXACIN
     Indication: EAR INFECTION
     Route: 001
     Dates: start: 20120210, end: 20120214
  5. OFLOXACINE [Suspect]
     Active Substance: OFLOXACIN
     Indication: RASH GENERALISED
     Dosage: 200MG, SINGLE
     Route: 048
     Dates: start: 20121201, end: 20121201
  6. ORELOX [Concomitant]
     Active Substance: CEFPODOXIME
     Indication: SEASONAL ALLERGY
  7. CEFPODOXIME [Concomitant]
     Active Substance: CEFPODOXIME
     Indication: PRODUCT USED FOR UNKNOWN INDICATION
  8. OFLOXACINE [Suspect]
     Active Substance: OFLOXACIN
     Indication: EAR INFECTION
     Dosage: 200MG UNK
     Route: 048

REACTIONS (7)
  - Type I hypersensitivity [Recovering/Resolving]
  - Erythema [Unknown]
  - Eczema [Recovered/Resolved]
  - Papule [Unknown]
  - Urticaria [Recovering/Resolving]
  - Type IV hypersensitivity reaction [Recovered/Resolved]
  - Rash [Unknown]

NARRATIVE: CASE EVENT DATE: 20120214
